FAERS Safety Report 6377755-2 (Version None)
Quarter: 2009Q3

REPORT INFORMATION
  Report Type: 
  Country: None (occurrence: None)
  Receive Date: 20090925
  Receipt Date: 20090924
  Transmission Date: 20100115
  Serious: No
  Sender: FDA-Public Use
  Company Number: US-B.I. PHARMACEUTICALS,INC./RIDGEFIELD-2007-BP-22389BP

PATIENT
  Age: 60 Year
  Sex: Male

DRUGS (6)
  1. FLOMAX [Suspect]
     Indication: BENIGN PROSTATIC HYPERPLASIA
     Dosage: 0.4 MG
     Route: 048
     Dates: start: 20061001
  2. FLOMAX [Suspect]
     Dosage: 0.8 MG
     Route: 048
     Dates: start: 20080101
  3. NORVASC [Concomitant]
     Indication: HYPERTENSION
  4. LORAZEPAM [Concomitant]
  5. NEXIUM [Concomitant]
  6. WELLCHOL [Concomitant]
     Indication: BLOOD CHOLESTEROL

REACTIONS (13)
  - BACK PAIN [None]
  - DRY MOUTH [None]
  - EJACULATION FAILURE [None]
  - ERECTILE DYSFUNCTION [None]
  - GROIN PAIN [None]
  - HAEMORRHAGE [None]
  - INFERTILITY MALE [None]
  - PAIN [None]
  - PAIN IN EXTREMITY [None]
  - PENILE PAIN [None]
  - PEYRONIE'S DISEASE [None]
  - RETROGRADE EJACULATION [None]
  - SENSORY LOSS [None]
